FAERS Safety Report 24094735 (Version 2)
Quarter: 2025Q3

REPORT INFORMATION
  Report Type: Report from Study
  Country: CA (occurrence: CA)
  Receive Date: 20240716
  Receipt Date: 20250718
  Transmission Date: 20251021
  Serious: Yes (Hospitalization, Other)
  Sender: BIOGEN
  Company Number: CA-BIOGEN-2024BI01273590

PATIENT
  Sex: Female

DRUGS (1)
  1. TECFIDERA [Suspect]
     Active Substance: DIMETHYL FUMARATE
     Indication: Multiple sclerosis
     Dosage: MAINTENANCE DOSE, WEEK OF 1ST JULY 2025
     Route: 050
     Dates: start: 20140627

REACTIONS (7)
  - Fall [Recovered/Resolved]
  - Head injury [Not Recovered/Not Resolved]
  - Concussion [Not Recovered/Not Resolved]
  - Retinal detachment [Not Recovered/Not Resolved]
  - Multiple sclerosis [Not Recovered/Not Resolved]
  - Optic neuritis [Not Recovered/Not Resolved]
  - Loss of control of legs [Unknown]
